FAERS Safety Report 8846308 (Version 2)
Quarter: 2012Q4

REPORT INFORMATION
  Report Type: 
  Country: US (occurrence: US)
  Receive Date: 20121018
  Receipt Date: 20121122
  Transmission Date: 20130627
  Serious: Yes (Hospitalization)
  Sender: FDA-Public Use
  Company Number: US-BIOGENIDEC-2008BI014592

PATIENT
  Age: 68 Year
  Sex: Female

DRUGS (1)
  1. AVONEX [Suspect]
     Indication: MULTIPLE SCLEROSIS
     Route: 030
     Dates: start: 19990101, end: 20120906

REACTIONS (4)
  - Knee arthroplasty [Recovered/Resolved]
  - Joint destruction [Recovered/Resolved]
  - Osteoarthritis [Recovered/Resolved]
  - Fall [Recovered/Resolved]
